FAERS Safety Report 20975781 (Version 2)
Quarter: 2022Q3

REPORT INFORMATION
  Report Type: Spontaneous
  Country: IT (occurrence: IT)
  Receive Date: 20220617
  Receipt Date: 20220705
  Transmission Date: 20221026
  Serious: Yes (Other)
  Sender: FDA-Public Use
  Company Number: IT-ORGANON-O2206ITA001445

PATIENT
  Sex: Female

DRUGS (2)
  1. NUVARING [Suspect]
     Active Substance: ETHINYL ESTRADIOL\ETONOGESTREL
     Dosage: UNK
     Route: 067
  2. NUVARING [Suspect]
     Active Substance: ETHINYL ESTRADIOL\ETONOGESTREL
     Dosage: 1 RING
     Route: 067

REACTIONS (3)
  - Pregnancy with contraceptive device [Unknown]
  - Unintended pregnancy [Unknown]
  - Device breakage [Unknown]
